FAERS Safety Report 6553616-0 (Version None)
Quarter: 2010Q1

REPORT INFORMATION
  Report Type: 
  Country: None (occurrence: None)
  Receive Date: 20100127
  Receipt Date: 20100118
  Transmission Date: 20100710
  Serious: Yes (Hospitalization)
  Sender: FDA-Public Use
  Company Number: GB-NOVOPROD-303228

PATIENT
  Age: 38 Year
  Sex: Male

DRUGS (1)
  1. NOVOMIX 30 [Suspect]
     Indication: DRUG USE FOR UNKNOWN INDICATION
     Dosage: UNK
     Route: 058

REACTIONS (2)
  - CARDIAC DISORDER [None]
  - WEIGHT INCREASED [None]
